FAERS Safety Report 5705336-X (Version None)
Quarter: 2008Q2

REPORT INFORMATION
  Report Type: 
  Country: None (occurrence: None)
  Receive Date: 20080410
  Receipt Date: 20080328
  Transmission Date: 20081010
  Serious: Yes (Hospitalization)
  Sender: FDA-Public Use
  Company Number: 2008BI008237

PATIENT
  Age: 21 Year
  Sex: Female

DRUGS (7)
  1. TYSABRI [Suspect]
     Indication: MULTIPLE SCLEROSIS
     Dosage: 300 MG;QM;IV
     Route: 042
     Dates: start: 20070901
  2. AMANTADINE HCL [Concomitant]
  3. PRISOLINE [Concomitant]
  4. TROSPIUM [Concomitant]
  5. BACLOFENE [Concomitant]
  6. BROMAZEPAM [Concomitant]
  7. ESCITALOPRAM OXALATE [Concomitant]

REACTIONS (3)
  - CONDITION AGGRAVATED [None]
  - DERMATITIS ATOPIC [None]
  - PRURITUS [None]
